FAERS Safety Report 6250077-6 (Version None)
Quarter: 2009Q2

REPORT INFORMATION
  Report Type: 
  Country: None (occurrence: None)
  Receive Date: 20090625
  Receipt Date: 20090615
  Transmission Date: 20091009
  Serious: Yes (Hospitalization, Other)
  Sender: FDA-Public Use
  Company Number: GXKR2009GB06928

PATIENT
  Age: 36 Year
  Sex: Male

DRUGS (1)
  1. CEFTRIAXONE [Suspect]
     Indication: BRAIN ABSCESS
     Dosage: 4 G, INTRAVENOUS
     Route: 042
     Dates: start: 20090103, end: 20090107

REACTIONS (3)
  - LIVER FUNCTION TEST ABNORMAL [None]
  - PALLOR [None]
  - RASH MACULO-PAPULAR [None]
